FAERS Safety Report 11486636 (Version 3)
Quarter: 2016Q1

REPORT INFORMATION
  Report Type: Spontaneous
  Country: US (occurrence: US)
  Receive Date: 20150910
  Receipt Date: 20160201
  Transmission Date: 20160525
  Serious: No
  Sender: FDA-Public Use
  Company Number: US-PFIZER INC-2015285098

PATIENT
  Age: 29 Year
  Sex: Female

DRUGS (1)
  1. SUTENT [Suspect]
     Active Substance: SUNITINIB MALATE
     Indication: CONNECTIVE TISSUE NEOPLASM
     Dosage: 37.5 MG, 1X/DAY
     Route: 048
     Dates: start: 20150815

REACTIONS (3)
  - Product use issue [Unknown]
  - Menorrhagia [Unknown]
  - Oral pain [Unknown]

NARRATIVE: CASE EVENT DATE: 20150824
